FAERS Safety Report 20030016 (Version 1)
Quarter: 2021Q4

REPORT INFORMATION
  Report Type: Spontaneous
  Country: DK (occurrence: DK)
  Receive Date: 20211103
  Receipt Date: 20211103
  Transmission Date: 20220303
  Serious: Yes (Hospitalization)
  Sender: FDA-Public Use
  Company Number: None

PATIENT
  Age: 91 Year
  Sex: Female
  Weight: 61 kg

DRUGS (1)
  1. DESMOPRESSIN [Suspect]
     Active Substance: DESMOPRESSIN
     Indication: Diabetes insipidus
     Dosage: 60 MICROGRAM DAILY;   AT NIGHT
     Route: 048
     Dates: start: 20130904, end: 20210617

REACTIONS (4)
  - Hyponatraemia [Recovering/Resolving]
  - Fluid retention [Recovering/Resolving]
  - Malaise [Unknown]
  - Hypertension [Recovering/Resolving]

NARRATIVE: CASE EVENT DATE: 20210501
